FAERS Safety Report 16470398 (Version 1)
Quarter: 2019Q2

REPORT INFORMATION
  Report Type: Spontaneous
  Country: US (occurrence: US)
  Receive Date: 20190624
  Receipt Date: 20190624
  Transmission Date: 20190711
  Serious: Yes (Hospitalization)
  Sender: FDA-Public Use
  Company Number: US-SCILEX PHARMACEUTICALS INC.-2019SCX00047

PATIENT
  Age: 45 Year
  Sex: Male

DRUGS (6)
  1. AMITRIPTYLINE [Suspect]
     Active Substance: AMITRIPTYLINE
     Route: 048
  2. LIDOCAINE. [Suspect]
     Active Substance: LIDOCAINE
     Route: 048
  3. MELOXICAM. [Suspect]
     Active Substance: MELOXICAM
     Route: 048
  4. BACLOFEN. [Suspect]
     Active Substance: BACLOFEN
     Route: 048
  5. GABAPENTIN. [Suspect]
     Active Substance: GABAPENTIN
     Route: 048
  6. PRILOCAINE [Suspect]
     Active Substance: PRILOCAINE
     Route: 048

REACTIONS (3)
  - Cardiotoxicity [Unknown]
  - Overdose [Recovered/Resolved]
  - Respiratory failure [Unknown]
